FAERS Safety Report 10055874 (Version 2)
Quarter: 2014Q2

REPORT INFORMATION
  Report Type: Report from Study
  Country: BR (occurrence: BR)
  Receive Date: 20140403
  Receipt Date: 20140418
  Transmission Date: 20141212
  Serious: Yes (Hospitalization, Other)
  Sender: FDA-Public Use
  Company Number: PHHY2014BR038381

PATIENT
  Age: 64 Year
  Sex: Female
  Weight: 55 kg

DRUGS (2)
  1. DIOVAN [Suspect]
     Indication: HYPERTENSION
     Dosage: UNK UKN, UNK
  2. INSULIN [Suspect]
     Indication: DIABETES MELLITUS
     Dosage: 20 ML, DAILY
     Route: 065

REACTIONS (7)
  - Cerebrovascular accident [Recovered/Resolved with Sequelae]
  - Speech disorder [Recovering/Resolving]
  - Coordination abnormal [Recovering/Resolving]
  - Dysgraphia [Not Recovered/Not Resolved]
  - Gait disturbance [Recovering/Resolving]
  - Blood glucose increased [Recovering/Resolving]
  - Blood pressure increased [Recovering/Resolving]
